FAERS Safety Report 7361531-8 (Version None)
Quarter: 2011Q1

REPORT INFORMATION
  Report Type: 
  Country: None (occurrence: None)
  Receive Date: 20110318
  Receipt Date: 20110314
  Transmission Date: 20110831
  Serious: Yes (Life-Threatening, Hospitalization, Other)
  Sender: FDA-Public Use
  Company Number: PHFR2010GB05722

PATIENT
  Sex: Male

DRUGS (2)
  1. AMISULPRIDE [Concomitant]
     Indication: SCHIZOPHRENIA
     Dosage: 200 MG, BID
     Route: 048
     Dates: start: 20070701
  2. CLOZARIL [Suspect]
     Indication: SCHIZOPHRENIA
     Dosage: 450 MG, UNK
     Route: 048
     Dates: start: 20061106, end: 20101119

REACTIONS (7)
  - PSYCHOTIC DISORDER [None]
  - SEPSIS [None]
  - PNEUMONIA [None]
  - CARDIOGENIC SHOCK [None]
  - LEFT VENTRICULAR DYSFUNCTION [None]
  - CARDIOMYOPATHY [None]
  - MULTI-ORGAN FAILURE [None]
